FAERS Safety Report 5798572-8 (Version None)
Quarter: 2008Q3

REPORT INFORMATION
  Report Type: 
  Country: None (occurrence: None)
  Receive Date: 20080701
  Receipt Date: 20080701
  Transmission Date: 20090109
  Serious: No
  Sender: FDA-Public Use
  Company Number: None

PATIENT
  Age: 63 Year
  Sex: Female

DRUGS (2)
  1. INDOMETHACIN [Suspect]
     Indication: PAIN
     Dosage: 25 MG TID PO
     Route: 048
     Dates: start: 19950701, end: 20071206
  2. IBUPROFEN TABLETS [Suspect]
     Dosage: 200 MG PRN
     Dates: end: 20071206

REACTIONS (2)
  - ANAEMIA [None]
  - EROSIVE DUODENITIS [None]
